FAERS Safety Report 23864800 (Version 1)
Quarter: 2024Q2

REPORT INFORMATION
  Report Type: Spontaneous
  Country: CA (occurrence: None)
  Receive Date: 20240511
  Receipt Date: 20240511
  Transmission Date: 20240715
  Serious: No
  Sender: FDA-Public Use
  Company Number: None

PATIENT
  Age: 40 Year
  Sex: Female
  Weight: 67.5 kg

DRUGS (5)
  1. COSMETICS [Suspect]
     Active Substance: COSMETICS
     Indication: Eye colour change
     Dosage: 2 DROPS TWICE A DAY OPHTHALMIC?
     Route: 047
     Dates: start: 20240508, end: 20240509
  2. METHYLPHENIDATE HYDROCHLORIDE [Concomitant]
     Active Substance: METHYLPHENIDATE HYDROCHLORIDE
  3. SEROQUEL [Concomitant]
     Active Substance: QUETIAPINE FUMARATE
  4. Tria Inhaler [Concomitant]
  5. IRON [Concomitant]
     Active Substance: IRON

REACTIONS (6)
  - Eye injury [None]
  - Dry eye [None]
  - Eye pruritus [None]
  - Eye pain [None]
  - Visual impairment [None]
  - Glaucoma [None]

NARRATIVE: CASE EVENT DATE: 20240510
